FAERS Safety Report 25921871 (Version 1)
Quarter: 2025Q4

REPORT INFORMATION
  Report Type: Spontaneous
  Country: US (occurrence: US)
  Receive Date: 20251015
  Receipt Date: 20251015
  Transmission Date: 20260117
  Serious: No
  Sender: SANOFI AVENTIS
  Company Number: US-SA-2025SA304444

PATIENT
  Sex: Female

DRUGS (19)
  1. DUPIXENT [Suspect]
     Active Substance: DUPILUMAB
     Indication: Dermatitis atopic
     Dosage: 300 MG, QOW
     Route: 058
  2. ASPIRIN [Concomitant]
     Active Substance: ASPIRIN
     Dosage: UNK; TBE
  3. CICLOPIROX [Concomitant]
     Active Substance: CICLOPIROX
     Dosage: UNK; SOL
  4. CLOBETASOL [Concomitant]
     Active Substance: CLOBETASOL
     Dosage: UNK; CRE
  5. FLUOCINONIDE [Concomitant]
     Active Substance: FLUOCINONIDE
     Dosage: UNK; CRE
  6. IMODIUM A-D [Concomitant]
     Active Substance: LOPERAMIDE HYDROCHLORIDE
     Dosage: UNK; SOL
  7. OMEPRAZOLE [Concomitant]
     Active Substance: OMEPRAZOLE
     Dosage: UNK; CPD
  8. PROBIOTICS NOS [Concomitant]
     Active Substance: PROBIOTICS NOS
     Dosage: UNK; TBE
  9. VENLAFAXINE [Concomitant]
     Active Substance: VENLAFAXINE HYDROCHLORIDE
     Dosage: UNK; CP2
  10. KETOCONAZOLE [Concomitant]
     Active Substance: KETOCONAZOLE
     Dosage: UNK; SHA
  11. CARVEDILOL [Concomitant]
     Active Substance: CARVEDILOL
  12. NITROGLYCERIN [Concomitant]
     Active Substance: NITROGLYCERIN
     Dosage: UNK; SUB
  13. PROLIA [Concomitant]
     Active Substance: DENOSUMAB
     Dosage: UNK; SOS
  14. REFRESH RELIEVA PF [Concomitant]
     Active Substance: CARBOXYMETHYLCELLULOSE SODIUM\GLYCERIN
     Dosage: UNK
  15. VITAMIN D NOS [Concomitant]
     Active Substance: CHOLECALCIFEROL\ERGOCALCIFEROL
     Dosage: UNK; 1000
  16. CARTIA XT [Concomitant]
     Active Substance: DILTIAZEM HYDROCHLORIDE
     Dosage: UNK; CP2
  17. ISOSORBIDE [Concomitant]
     Active Substance: ISOSORBIDE
     Dosage: UNK; M TB2
  18. OMEPRAZOLE [Concomitant]
     Active Substance: OMEPRAZOLE
     Dosage: UNK; CPD
  19. ROSUVASTATIN [Concomitant]
     Active Substance: ROSUVASTATIN

REACTIONS (4)
  - Pain [Recovered/Resolved]
  - Tremor [Recovered/Resolved]
  - Neuralgia [Recovered/Resolved]
  - Musculoskeletal stiffness [Recovered/Resolved]
